FAERS Safety Report 8512800-7 (Version None)
Quarter: 2012Q3

REPORT INFORMATION
  Report Type: 
  Country: None (occurrence: None)
  Receive Date: 20120716
  Receipt Date: 20120711
  Transmission Date: 20120928
  Serious: Yes (Hospitalization)
  Sender: FDA-Public Use
  Company Number: US-PFIZER INC-2012127444

PATIENT
  Sex: Female
  Weight: 58.503 kg

DRUGS (36)
  1. BLINDED NO SUBJECT DRUG [Suspect]
     Indication: OSTEOARTHRITIS
     Dosage: HIGH DOSE, 3X/DAY
     Route: 048
     Dates: start: 20110110, end: 20110914
  2. IBUPROFEN [Suspect]
  3. FLONASE [Concomitant]
     Indication: RHINITIS
     Dosage: 2 SPRAYS, 2X/DAY
     Route: 045
     Dates: start: 20091228
  4. CELECOXIB [Suspect]
     Indication: OSTEOARTHRITIS
     Dosage: HIGH DOSE, 3X/DAY
     Route: 048
     Dates: start: 20110110, end: 20110914
  5. ONGLYZA [Concomitant]
     Indication: TYPE 2 DIABETES MELLITUS
     Dosage: 5 MG, 1X/DAY
     Route: 048
     Dates: start: 20091228
  6. BYSTOLIC [Concomitant]
     Indication: HYPERTENSION
     Dosage: 10 MG, HS
     Route: 048
     Dates: start: 20091228
  7. PLACEBO [Suspect]
     Indication: OSTEOARTHRITIS
     Dosage: HIGH DOSE, 3X/DAY
     Route: 048
     Dates: start: 20110110, end: 20110914
  8. CELECOXIB [Suspect]
     Indication: RHEUMATOID ARTHRITIS
  9. POTASSIUM CHLORIDE [Concomitant]
     Indication: ROUTINE HEALTH MAINTENANCE
     Dosage: 12 MEQ, 1X/DAY
     Route: 048
     Dates: start: 20091228
  10. SINGULAIR [Concomitant]
     Indication: CHRONIC OBSTRUCTIVE PULMONARY DISEASE
     Dosage: 10 MG, HS, INHALED
     Route: 045
     Dates: start: 20091228
  11. FLUOXETINE [Concomitant]
     Indication: DEPRESSION
     Dosage: 40 MG, 1X/DAY
     Route: 048
     Dates: start: 20091228
  12. IBUPROFEN [Suspect]
     Indication: OSTEOARTHRITIS
     Dosage: HIGH DOSE, 3X/DAY
     Route: 048
     Dates: start: 20110110, end: 20110914
  13. NAPROXEN [Suspect]
     Dosage: HIGH DOSE, 3X/DAY
     Route: 048
     Dates: start: 20110110, end: 20110914
  14. BLINDED NO SUBJECT DRUG [Suspect]
     Indication: RHEUMATOID ARTHRITIS
  15. ATIVAN [Suspect]
     Dosage: UNK
  16. LEVOTHYROXINE [Concomitant]
     Indication: HYPOTHYROIDISM
     Dosage: 137 UG, 1X/DAY
     Route: 048
     Dates: start: 20091228
  17. OXYCONTIN [Suspect]
     Indication: PAIN
     Dosage: 80 MG, 2X/DAY
     Route: 048
     Dates: start: 20110126, end: 20110914
  18. GLIMEPIRIDE [Concomitant]
     Indication: TYPE 2 DIABETES MELLITUS
     Dosage: 4 MG, 2X/DAY
     Route: 048
     Dates: start: 20091228
  19. ZOCOR [Concomitant]
     Indication: DYSLIPIDAEMIA
     Dosage: 500/20 MG, 1X/DAY
     Route: 048
     Dates: start: 20091228
  20. NAPROXEN [Suspect]
     Indication: OSTEOARTHRITIS
     Dosage: HIGH DOSE, 3X/DAY
     Route: 048
     Dates: start: 20110110, end: 20110914
  21. NAPROXEN [Suspect]
     Indication: RHEUMATOID ARTHRITIS
  22. PREMPRO [Concomitant]
     Indication: BLOOD OESTROGEN
     Dosage: 0.625 MG, 2 QD
     Route: 048
     Dates: start: 20091228
  23. SEROQUEL [Concomitant]
     Indication: BIPOLAR DISORDER
     Dosage: 200 MG, 3 TAB QD HS
     Route: 048
     Dates: start: 20091228
  24. ROPINIROLE HYDROCHLORIDE [Concomitant]
     Indication: RESTLESS LEGS SYNDROME
     Dosage: 1 MG, 1X/DAY
     Route: 048
     Dates: start: 20091228
  25. IBUPROFEN [Suspect]
     Dosage: HIGH DOSE, 3X/DAY
     Route: 048
     Dates: start: 20110110, end: 20110914
  26. IBUPROFEN [Suspect]
     Indication: RHEUMATOID ARTHRITIS
  27. NAPROXEN [Suspect]
  28. OXYCODONE HCL [Suspect]
     Indication: PAIN
     Dosage: 30 MG, 3X/DAY
     Route: 048
     Dates: start: 20110126, end: 20110914
  29. SAVELLA [Concomitant]
     Indication: FIBROMYALGIA
     Dosage: 50 UG, 2X/DAY
     Route: 048
     Dates: start: 20091228
  30. SOMA [Concomitant]
     Indication: MUSCLE RELAXANT THERAPY
     Dosage: 350 MG, 3X/DAY
     Route: 048
     Dates: start: 20091228
  31. TIOTROPIUM [Concomitant]
     Indication: CHRONIC OBSTRUCTIVE PULMONARY DISEASE
     Dosage: 18 UG, 2X/DAY, INHALED
     Route: 045
     Dates: start: 20091228
  32. ACETAMINOPHEN [Concomitant]
     Indication: HEADACHE
     Dosage: Q 6H
     Route: 048
     Dates: start: 20091228
  33. LASIX [Concomitant]
     Indication: HYPERTENSION
     Dosage: 40 MG, 1X/DAY
     Route: 048
     Dates: start: 20091228
  34. PLACEBO [Suspect]
     Indication: RHEUMATOID ARTHRITIS
  35. NEXIUM [Concomitant]
     Indication: PROPHYLAXIS
     Dosage: 40 MG, 1X/DAY
     Route: 048
     Dates: start: 20110110, end: 20110913
  36. SYMBICORT [Concomitant]
     Indication: CHRONIC OBSTRUCTIVE PULMONARY DISEASE
     Dosage: 2 PUFFS, 2X/DAY, INHALED
     Route: 045
     Dates: start: 20091228

REACTIONS (1)
  - RENAL FAILURE ACUTE [None]
